FAERS Safety Report 16643294 (Version 2)
Quarter: 2019Q3

REPORT INFORMATION
  Report Type: Spontaneous
  Country: SK (occurrence: SK)
  Receive Date: 20190729
  Receipt Date: 20190930
  Transmission Date: 20191004
  Serious: Yes (Other)
  Sender: FDA-Public Use
  Company Number: SK-ELI_LILLY_AND_COMPANY-SK201907010050

PATIENT
  Age: 38 Year
  Sex: Female

DRUGS (6)
  1. VALDOXAN [Concomitant]
     Active Substance: AGOMELATINE
     Dosage: UNK UNK, DAILY
  2. NEUROL [ALPRAZOLAM] [Concomitant]
     Dosage: 0.5 MG, TID
  3. OLANZAPINE. [Concomitant]
     Active Substance: OLANZAPINE
     Dosage: 10 MG, DAILY
  4. EUTHYROX [Concomitant]
     Active Substance: LEVOTHYROXINE SODIUM
     Dosage: 75 MG, DAILY
  5. ZYPADHERA [Suspect]
     Active Substance: OLANZAPINE PAMOATE
     Indication: PRODUCT USED FOR UNKNOWN INDICATION
     Dosage: 300 MG, UNKNOWN
     Route: 030
     Dates: start: 20190708
  6. ALVENTA [Concomitant]
     Active Substance: VENLAFAXINE HYDROCHLORIDE
     Dosage: 150 MG, UNKNOWN

REACTIONS (8)
  - Dysstasia [Recovered/Resolved]
  - Sedation [Recovered/Resolved]
  - Tension [Recovered/Resolved]
  - Loss of consciousness [Recovered/Resolved]
  - Slow response to stimuli [Recovered/Resolved]
  - Somnolence [Recovered/Resolved]
  - Altered state of consciousness [Unknown]
  - Dysarthria [Recovered/Resolved]

NARRATIVE: CASE EVENT DATE: 20190708
